FAERS Safety Report 8223265-7 (Version None)
Quarter: 2012Q1

REPORT INFORMATION
  Report Type: 
  Country: None (occurrence: None)
  Receive Date: 20120321
  Receipt Date: 20120314
  Transmission Date: 20120608
  Serious: Yes (Hospitalization)
  Sender: FDA-Public Use
  Company Number: DE-ROCHE-1037535

PATIENT
  Sex: Female
  Weight: 69 kg

DRUGS (6)
  1. XELODA [Suspect]
     Indication: BREAST CANCER METASTATIC
     Route: 048
     Dates: start: 20120126, end: 20120128
  2. EXFORGE [Concomitant]
     Indication: HYPERTENSION
     Dosage: 10/160 MG
     Route: 048
  3. INDAPAMIDE [Concomitant]
     Indication: HYPERTENSION
     Route: 048
  4. BISOPROLOL FUMARATE [Concomitant]
     Route: 048
  5. SIMVASTATIN [Concomitant]
     Indication: HYPERCHOLESTEROLAEMIA
     Route: 048
  6. AVASTIN [Suspect]
     Indication: BREAST CANCER METASTATIC
     Route: 042
     Dates: start: 20120124, end: 20120128

REACTIONS (3)
  - MYOCARDIAL INFARCTION [None]
  - ANGINA UNSTABLE [None]
  - ENDOTHELIAL DYSFUNCTION [None]
